FAERS Safety Report 7024863-9 (Version None)
Quarter: 2010Q4

REPORT INFORMATION
  Report Type: 
  Country: None (occurrence: None)
  Receive Date: 20101001
  Receipt Date: 20100920
  Transmission Date: 20110411
  Serious: Yes (Hospitalization)
  Sender: FDA-Public Use
  Company Number: US-JNJFOC-20100907235

PATIENT
  Age: 67 Year
  Sex: Male
  Weight: 98.34 kg

DRUGS (15)
  1. EXTRA STRENGTH TYLENOL [Suspect]
     Route: 048
  2. EXTRA STRENGTH TYLENOL [Suspect]
     Indication: PAIN IN EXTREMITY
     Route: 048
  3. ADVIL LIQUI-GELS [Suspect]
     Indication: PAIN IN EXTREMITY
     Route: 048
  4. CODEINE [Suspect]
     Indication: PAIN IN EXTREMITY
     Route: 048
  5. NEURONTIN [Suspect]
     Indication: PRODUCT USED FOR UNKNOWN INDICATION
     Route: 048
  6. NORVASC [Concomitant]
  7. VALSARTAN [Concomitant]
  8. CYMBALTA [Concomitant]
  9. TRAZODONE HCL [Concomitant]
  10. UROXATRAL [Concomitant]
  11. PRILOSEC [Concomitant]
  12. DIOVAN [Concomitant]
  13. CIALIS [Concomitant]
  14. GLUCOSAMINE [Concomitant]
  15. CENTRUM MULTIVITAMINS [Concomitant]

REACTIONS (1)
  - ILEUS PARALYTIC [None]
